FAERS Safety Report 21911105 (Version 1)
Quarter: 2023Q1

REPORT INFORMATION
  Report Type: Spontaneous
  Country: US (occurrence: US)
  Receive Date: 20230125
  Receipt Date: 20230125
  Transmission Date: 20230418
  Serious: No
  Sender: FDA-Public Use
  Company Number: US-ALLERGAN-2209343US

PATIENT
  Sex: Female
  Weight: 58.96 kg

DRUGS (5)
  1. BOTOX COSMETIC [Suspect]
     Active Substance: ONABOTULINUMTOXINA
     Indication: Skin wrinkling
     Dosage: 3 UNITS, SINGLE
     Route: 030
     Dates: start: 20220413, end: 20220413
  2. BOTOX COSMETIC [Suspect]
     Active Substance: ONABOTULINUMTOXINA
     Indication: Skin wrinkling
     Dosage: 16 UNITS, SINGLE
     Route: 030
     Dates: start: 20220413, end: 20220413
  3. BOTOX COSMETIC [Suspect]
     Active Substance: ONABOTULINUMTOXINA
     Indication: Skin wrinkling
     Dosage: 9 UNITS, SINGLE
     Route: 030
     Dates: start: 20220413, end: 20220413
  4. BOTOX COSMETIC [Suspect]
     Active Substance: ONABOTULINUMTOXINA
     Indication: Excessive gingival display
     Dosage: 10 UNITS, SINGLE
     Route: 030
     Dates: start: 20220413, end: 20220413
  5. BOTOX COSMETIC [Suspect]
     Active Substance: ONABOTULINUMTOXINA
     Indication: Skin wrinkling
     Dosage: 2 UNITS, SINGLE
     Route: 030
     Dates: start: 20220413, end: 20220413

REACTIONS (2)
  - Off label use [Unknown]
  - Injection site swelling [Recovered/Resolved]

NARRATIVE: CASE EVENT DATE: 20220414
